FAERS Safety Report 11093542 (Version 2)
Quarter: 2015Q2

REPORT INFORMATION
  Report Type: Spontaneous
  Country: DE (occurrence: DE)
  Receive Date: 20150506
  Receipt Date: 20150605
  Transmission Date: 20150821
  Serious: Yes (Other)
  Sender: FDA-Public Use
  Company Number: DE-TEVA-559192GER

PATIENT
  Sex: Male
  Weight: 67 kg

DRUGS (1)
  1. ESOMEPRAZOL-RATIOPHARM [Suspect]
     Active Substance: ESOMEPRAZOLE
     Indication: GASTROOESOPHAGEAL REFLUX DISEASE
     Dosage: 20 MILLIGRAM DAILY;
     Route: 048
     Dates: start: 2002

REACTIONS (2)
  - Polyneuropathy idiopathic progressive [Recovering/Resolving]
  - Hyperferritinaemia [Not Recovered/Not Resolved]
